FAERS Safety Report 19394147 (Version 1)
Quarter: 2021Q2

REPORT INFORMATION
  Report Type: Spontaneous
  Country: US (occurrence: US)
  Receive Date: 20210608
  Receipt Date: 20210608
  Transmission Date: 20210717
  Serious: No
  Sender: FDA-Public Use
  Company Number: None

PATIENT
  Age: 73 Year
  Sex: Male
  Weight: 63.5 kg

DRUGS (13)
  1. LEVOTHYROXINE SODIUM. [Concomitant]
     Active Substance: LEVOTHYROXINE SODIUM
  2. SODIUM BICARBONATE. [Concomitant]
     Active Substance: SODIUM BICARBONATE
  3. SIMVASTATIN. [Concomitant]
     Active Substance: SIMVASTATIN
  4. PANTOPRAZOLE SODIUM. [Concomitant]
     Active Substance: PANTOPRAZOLE SODIUM
  5. TAMSULOSIN HCL [Concomitant]
     Active Substance: TAMSULOSIN HYDROCHLORIDE
  6. CELEXA [Concomitant]
     Active Substance: CITALOPRAM HYDROBROMIDE
  7. ONDANSETRON HCL [Concomitant]
     Active Substance: ONDANSETRON HYDROCHLORIDE
  8. KEYTRUDA [Concomitant]
     Active Substance: PEMBROLIZUMAB
  9. MULTIVITAMIN [Concomitant]
     Active Substance: VITAMINS
  10. INLYTA [Suspect]
     Active Substance: AXITINIB
     Indication: RENAL CANCER
     Route: 048
     Dates: start: 20210409, end: 20210430
  11. KEPPRA [Concomitant]
     Active Substance: LEVETIRACETAM
  12. PROSTATE HELATH SUPPLEMENT [Concomitant]
  13. MAGNESIUM CHLORIDE. [Concomitant]
     Active Substance: MAGNESIUM CHLORIDE

REACTIONS (1)
  - Renal failure [None]

NARRATIVE: CASE EVENT DATE: 20210430
